FAERS Safety Report 7319517-5 (Version None)
Quarter: 2011Q1

REPORT INFORMATION
  Report Type: 
  Country: None (occurrence: None)
  Receive Date: 20110228
  Receipt Date: 20100427
  Transmission Date: 20110831
  Serious: Yes (Hospitalization)
  Sender: FDA-Public Use
  Company Number: A0856923A

PATIENT
  Age: 37 Year
  Sex: Female

DRUGS (2)
  1. OTHER MEDICATIONS [Concomitant]
  2. LAMOTRIGINE [Suspect]
     Indication: BIPOLAR DISORDER
     Dosage: 200MG PER DAY
     Route: 048
     Dates: start: 20081001, end: 20081101

REACTIONS (2)
  - DEPRESSION [None]
  - SUICIDAL IDEATION [None]
